FAERS Safety Report 26097710 (Version 2)
Quarter: 2025Q4

REPORT INFORMATION
  Report Type: Spontaneous
  Country: EU (occurrence: EU)
  Receive Date: 20251127
  Receipt Date: 20251205
  Transmission Date: 20260117
  Serious: Yes (Other)
  Sender: TEVA
  Company Number: EU-TEVA-VS-3396380

PATIENT
  Age: 77 Year
  Sex: Female

DRUGS (3)
  1. CISPLATIN [Suspect]
     Active Substance: CISPLATIN
     Indication: Gallbladder cancer metastatic
     Dosage: RECEIVED 6 CYCLES
     Route: 065
     Dates: start: 202404, end: 2024
  2. GEMCITABINE [Suspect]
     Active Substance: GEMCITABINE
     Indication: Gallbladder cancer metastatic
     Dosage: RECEIVED 6 CYCLES
     Route: 065
     Dates: start: 202404, end: 2024
  3. DURVALUMAB [Suspect]
     Active Substance: DURVALUMAB
     Indication: Gallbladder cancer metastatic
     Route: 065
     Dates: start: 202404

REACTIONS (5)
  - Fatigue [Unknown]
  - Systemic scleroderma [Recovering/Resolving]
  - Thrombotic microangiopathy [Not Recovered/Not Resolved]
  - Anaemia [Unknown]
  - Biliary tract disorder [Recovered/Resolved]

NARRATIVE: CASE EVENT DATE: 20240101
